FAERS Safety Report 15195046 (Version 2)
Quarter: 2018Q4

REPORT INFORMATION
  Report Type: Spontaneous
  Country: US (occurrence: US)
  Receive Date: 20180725
  Receipt Date: 20181102
  Transmission Date: 20190204
  Serious: No
  Sender: FDA-Public Use
  Company Number: US-SA-2018SA199484

PATIENT
  Sex: Male

DRUGS (1)
  1. DUPIXENT [Suspect]
     Active Substance: DUPILUMAB
     Indication: DERMATITIS ATOPIC
     Dosage: 300 MG, QOW
     Route: 058
     Dates: start: 20171101

REACTIONS (6)
  - Pruritus [Unknown]
  - Drug effect decreased [Unknown]
  - Product dose omission [Unknown]
  - Rash [Unknown]
  - Erythema [Unknown]
  - Rash macular [Unknown]
